FAERS Safety Report 6769074-7 (Version None)
Quarter: 2010Q2

REPORT INFORMATION
  Report Type: 
  Country: None (occurrence: None)
  Receive Date: 20100610
  Receipt Date: 20100601
  Transmission Date: 20101027
  Serious: Yes (Other)
  Sender: FDA-Public Use
  Company Number: 2010SP030739

PATIENT
  Sex: Female

DRUGS (2)
  1. IMPLANON [Suspect]
     Indication: DRUG USE FOR UNKNOWN INDICATION
     Dosage: 1 DF;
  2. EPILEPTIC MEDICATION (NOS) (ANTIEPILEPTICS) [Suspect]
     Indication: EPILEPSY

REACTIONS (2)
  - EPILEPSY [None]
  - VAGINAL HAEMORRHAGE [None]
